FAERS Safety Report 9771077 (Version 3)
Quarter: 2014Q1

REPORT INFORMATION
  Report Type: Spontaneous
  Country: US (occurrence: US)
  Receive Date: 20131218
  Receipt Date: 20140303
  Transmission Date: 20141002
  Serious: Yes (Hospitalization)
  Sender: FDA-Public Use
  Company Number: US-PFIZER INC-2013360039

PATIENT
  Age: 71 Year
  Sex: Male

DRUGS (8)
  1. TOVIAZ [Suspect]
     Dosage: 4 MG, UNK
  2. TOVIAZ [Suspect]
     Dosage: 8 MG, DAILY
     Dates: start: 20120625
  3. LOSARTAN [Concomitant]
     Dosage: UNK
  4. ATENOLOL [Concomitant]
     Dosage: 25 MG, UNK
  5. PRAVASTATIN [Concomitant]
     Dosage: UNK
  6. ZETIA [Concomitant]
     Dosage: UNK
  7. NIASPAN [Concomitant]
     Dosage: UNK
  8. ASPIRIN [Concomitant]
     Dosage: UNK

REACTIONS (1)
  - Road traffic accident [Unknown]
